FAERS Safety Report 4639928-6 (Version None)
Quarter: 2005Q2

REPORT INFORMATION
  Report Type: 
  Country: None (occurrence: None)
  Receive Date: 20050415
  Receipt Date: 20050415
  Transmission Date: 20051028
  Serious: Yes (Other)
  Sender: FDA-Public Use
  Company Number: None

PATIENT
  Sex: Female
  Weight: 72.893 kg

DRUGS (1)
  1. ADRIAMYCIN [Suspect]
     Indication: BREAST CANCER
     Dosage: 107 MG IV
     Route: 042

REACTIONS (2)
  - INFUSION RELATED REACTION [None]
  - URTICARIA [None]
